FAERS Safety Report 10234278 (Version 1)
Quarter: 2014Q2

REPORT INFORMATION
  Report Type: Spontaneous
  Country: GR (occurrence: GR)
  Receive Date: 20140612
  Receipt Date: 20140612
  Transmission Date: 20141212
  Serious: Yes (Other)
  Sender: FDA-Public Use
  Company Number: GR-B.I. PHARMACEUTICALS,INC./RIDGEFIELD-2014-BI-23449YA

PATIENT
  Age: 77 Year
  Sex: Male

DRUGS (1)
  1. OMNIC OCAS [Suspect]
     Indication: BENIGN PROSTATIC HYPERPLASIA
     Dosage: 0.4 MG
     Route: 048
     Dates: start: 2006

REACTIONS (4)
  - Floppy iris syndrome [Not Recovered/Not Resolved]
  - Priapism [Not Recovered/Not Resolved]
  - Photophobia [Not Recovered/Not Resolved]
  - Ejaculation disorder [Not Recovered/Not Resolved]
